FAERS Safety Report 25820092 (Version 1)
Quarter: 2025Q3

REPORT INFORMATION
  Report Type: Spontaneous
  Country: JP (occurrence: JP)
  Receive Date: 20250919
  Receipt Date: 20250919
  Transmission Date: 20251020
  Serious: Yes (Hospitalization)
  Sender: NOVARTIS
  Company Number: JP-002147023-NVSJ2025JP009273

PATIENT
  Age: 48 Year
  Sex: Female

DRUGS (2)
  1. CANAKINUMAB [Suspect]
     Active Substance: CANAKINUMAB
     Indication: Cryopyrin associated periodic syndrome
     Route: 058
  2. CANAKINUMAB [Suspect]
     Active Substance: CANAKINUMAB
     Route: 058

REACTIONS (4)
  - Psychiatric symptom [Recovering/Resolving]
  - Abnormal behaviour [Unknown]
  - Fall [Unknown]
  - Restlessness [Unknown]
